FAERS Safety Report 25980616 (Version 1)
Quarter: 2025Q4

REPORT INFORMATION
  Report Type: Report from Study
  Country: US (occurrence: US)
  Receive Date: 20251030
  Receipt Date: 20251030
  Transmission Date: 20260118
  Serious: No
  Sender: MALLINCKRODT
  Company Number: US-MALLINCKRODT-MNK202506317

PATIENT
  Sex: Female

DRUGS (4)
  1. CORTICOTROPIN [Suspect]
     Active Substance: CORTICOTROPIN
     Indication: Polymyositis
     Dosage: UNKNOWN
  2. CORTICOTROPIN [Suspect]
     Active Substance: CORTICOTROPIN
     Dosage: UNKNOWN
  3. ENBREL [Concomitant]
     Active Substance: ETANERCEPT
     Indication: Polymyositis
     Dosage: UNKNOWN
  4. ORENCIA [Concomitant]
     Active Substance: ABATACEPT
     Indication: Polymyositis
     Dosage: UNKNOWN

REACTIONS (4)
  - Skin discolouration [Unknown]
  - Asthenia [Recovering/Resolving]
  - Injection site pain [Unknown]
  - Injection site bruising [Recovered/Resolved]
